FAERS Safety Report 21510434 (Version 1)
Quarter: 2022Q4

REPORT INFORMATION
  Report Type: Report from Study
  Country: US (occurrence: US)
  Receive Date: 20221026
  Receipt Date: 20221026
  Transmission Date: 20230112
  Serious: Yes (Other)
  Sender: FDA-Public Use
  Company Number: US-JAZZ-2022-US-026547

PATIENT
  Sex: Female

DRUGS (19)
  1. XYREM [Suspect]
     Active Substance: SODIUM OXYBATE
     Indication: Narcolepsy
     Dosage: 3.75 GRAM, BID
  2. XYREM [Suspect]
     Active Substance: SODIUM OXYBATE
     Indication: Cataplexy
  3. XYREM [Suspect]
     Active Substance: SODIUM OXYBATE
     Indication: Somnolence
  4. LEXAPRO [Concomitant]
     Active Substance: ESCITALOPRAM OXALATE
     Dosage: UNK UNK, QD
     Dates: start: 20151030
  5. DIETARY SUPPLEMENT [Concomitant]
     Active Substance: DIETARY SUPPLEMENT
     Dosage: UNK, QD
     Dates: start: 20150401
  6. ALLEGRA ALLERGY [Concomitant]
     Active Substance: FEXOFENADINE HYDROCHLORIDE
     Dosage: UNK UNK, QD
     Dates: start: 20150408
  7. HYDROXYCHLOROQUINE SULFATE [Concomitant]
     Active Substance: HYDROXYCHLOROQUINE SULFATE
     Dosage: UNK UNK, QD
     Dates: start: 20151015
  8. IRON [Concomitant]
     Active Substance: IRON
     Dosage: UNK UNK, QD
     Dates: start: 20151015
  9. VITAMIN B12 [Concomitant]
     Active Substance: CYANOCOBALAMIN
     Dosage: 0000
     Dates: start: 20151015
  10. PROVIGIL [Concomitant]
     Active Substance: MODAFINIL
     Dosage: OTH
     Dates: start: 20150923
  11. ALEVE [Concomitant]
     Active Substance: NAPROXEN SODIUM
     Dosage: 0000
     Dates: start: 20160119
  12. RITALIN LA [Concomitant]
     Active Substance: METHYLPHENIDATE HYDROCHLORIDE
     Dosage: 0000
     Dates: start: 20170112
  13. FLUCONAZOLE [Concomitant]
     Active Substance: FLUCONAZOLE
     Dosage: 0000
     Dates: start: 20170116
  14. ASPIRIN [Concomitant]
     Active Substance: ASPIRIN
     Dosage: 0000
     Dates: start: 20170116
  15. OXYMETAZOLINE HYDROCHLORIDE [Concomitant]
     Active Substance: OXYMETAZOLINE HYDROCHLORIDE
     Dosage: 0000
     Dates: start: 20170116
  16. CYANOCOBALAMIN [Concomitant]
     Active Substance: CYANOCOBALAMIN
     Dosage: 0000
     Dates: start: 20170116
  17. SUNOSI [Concomitant]
     Active Substance: SOLRIAMFETOL
     Dosage: 0000
     Dates: start: 20190926
  18. ZYRTEC [Concomitant]
     Active Substance: CETIRIZINE HYDROCHLORIDE
     Dosage: UNK
  19. RESTASIS [Concomitant]
     Active Substance: CYCLOSPORINE
     Indication: Sjogren^s syndrome
     Dosage: UNK

REACTIONS (4)
  - Sjogren^s syndrome [Unknown]
  - Obstructive sleep apnoea syndrome [Unknown]
  - Depression [Recovered/Resolved]
  - Anxiety [Unknown]
